FAERS Safety Report 15637264 (Version 1)
Quarter: 2018Q4

REPORT INFORMATION
  Report Type: Spontaneous
  Country: SK (occurrence: SK)
  Receive Date: 20181120
  Receipt Date: 20181120
  Transmission Date: 20190205
  Serious: Yes (Death)
  Sender: FDA-Public Use
  Company Number: SK-ROCHE-2213718

PATIENT

DRUGS (1)
  1. TOCILIZUMAB. [Suspect]
     Active Substance: TOCILIZUMAB
     Indication: RHEUMATOID ARTHRITIS
     Route: 065

REACTIONS (5)
  - Respiratory failure [Fatal]
  - Embolism arterial [Fatal]
  - Myocardial infarction [Fatal]
  - Large intestine perforation [Fatal]
  - Aortic dissection [Fatal]
